FAERS Safety Report 9922739 (Version 6)
Quarter: 2015Q2

REPORT INFORMATION
  Report Type: Spontaneous
  Country: US (occurrence: US)
  Receive Date: 20140225
  Receipt Date: 20150624
  Transmission Date: 20150821
  Serious: Yes (Hospitalization, Other)
  Sender: FDA-Public Use
  Company Number: US-MERCK-1105USA02172

PATIENT
  Sex: Female
  Weight: 49.43 kg

DRUGS (2)
  1. ALENDRONATE SODIUM. [Suspect]
     Active Substance: ALENDRONATE SODIUM
     Indication: OSTEOPOROSIS
     Dosage: 70 MG, UNK
     Route: 048
     Dates: start: 20080314, end: 20110311
  2. FOSAMAX [Suspect]
     Active Substance: ALENDRONATE SODIUM
     Indication: OSTEOPOROSIS
     Dosage: 70 MG, QW
     Route: 048
     Dates: start: 19990917, end: 20080206

REACTIONS (38)
  - Open reduction of fracture [Unknown]
  - Hypothyroidism [Unknown]
  - Osteopenia [Unknown]
  - Fall [Unknown]
  - Vitamin D deficiency [Unknown]
  - Abdominal pain [Unknown]
  - Fall [Unknown]
  - Hand fracture [Unknown]
  - Glaucoma [Unknown]
  - Renal impairment [Unknown]
  - Pain in extremity [Unknown]
  - Femur fracture [Not Recovered/Not Resolved]
  - Hyperlipidaemia [Unknown]
  - Stress fracture [Unknown]
  - Fractured coccyx [Unknown]
  - Hand fracture [Recovered/Resolved with Sequelae]
  - Intervertebral disc disorder [Unknown]
  - Transient ischaemic attack [Unknown]
  - Hypercalcaemia [Unknown]
  - Osteoporosis [Unknown]
  - Rib fracture [Unknown]
  - Urinary tract infection [Unknown]
  - Osteoarthritis [Unknown]
  - Fracture nonunion [Unknown]
  - Iron deficiency anaemia [Not Recovered/Not Resolved]
  - Hysterectomy [Unknown]
  - Dementia Alzheimer^s type [Unknown]
  - Hypertension [Unknown]
  - Pain [Not Recovered/Not Resolved]
  - Spinal osteoarthritis [Unknown]
  - Back pain [Unknown]
  - Arthralgia [Unknown]
  - Open reduction of fracture [Unknown]
  - Muscular weakness [Unknown]
  - Arthritis [Unknown]
  - Appendicectomy [Unknown]
  - Irritable bowel syndrome [Unknown]
  - Hyperglycaemia [Unknown]

NARRATIVE: CASE EVENT DATE: 20000131
